FAERS Safety Report 8189042-0 (Version None)
Quarter: 2012Q1

REPORT INFORMATION
  Report Type: 
  Country: None (occurrence: None)
  Receive Date: 20120307
  Receipt Date: 20120227
  Transmission Date: 20120608
  Serious: No
  Sender: FDA-Public Use
  Company Number: US-BIOGENIDEC-2012BI007616

PATIENT
  Age: 45 Year
  Sex: Female

DRUGS (5)
  1. AVONEX [Concomitant]
     Route: 030
     Dates: start: 20020517
  2. TYSABRI [Suspect]
     Route: 042
     Dates: start: 20070117
  3. AVONEX [Concomitant]
     Route: 030
     Dates: start: 20040526
  4. TYSABRI [Suspect]
     Indication: MULTIPLE SCLEROSIS
     Route: 042
     Dates: start: 20050128
  5. AVONEX [Concomitant]
     Indication: MULTIPLE SCLEROSIS
     Route: 030

REACTIONS (3)
  - NUCLEAR MAGNETIC RESONANCE IMAGING ABNORMAL [None]
  - HYPOAESTHESIA [None]
  - MALAISE [None]
